FAERS Safety Report 10694893 (Version 1)
Quarter: 2015Q1

REPORT INFORMATION
  Report Type: Spontaneous
  Country: US (occurrence: None)
  Receive Date: 20150106
  Receipt Date: 20150106
  Transmission Date: 20150721
  Serious: Yes (Life-Threatening)
  Sender: FDA-Public Use
  Company Number: None

PATIENT
  Age: 63 Year
  Sex: Male
  Weight: 99.79 kg

DRUGS (2)
  1. PROHANCE [Suspect]
     Active Substance: GADOTERIDOL
     Indication: NUCLEAR MAGNETIC RESONANCE IMAGING BRAIN
     Dosage: 17ML  HAND PUSHED  IV
     Route: 042
     Dates: start: 20141224
  2. PROHANCE [Suspect]
     Active Substance: GADOTERIDOL
     Indication: HEADACHE
     Dosage: 17ML  HAND PUSHED  IV
     Route: 042
     Dates: start: 20141224

REACTIONS (1)
  - Cardio-respiratory arrest [None]

NARRATIVE: CASE EVENT DATE: 20141224
